FAERS Safety Report 21811399 (Version 3)
Quarter: 2023Q2

REPORT INFORMATION
  Report Type: Spontaneous
  Country: IT (occurrence: IT)
  Receive Date: 20230103
  Receipt Date: 20230420
  Transmission Date: 20230721
  Serious: Yes (Other)
  Sender: FDA-Public Use
  Company Number: IT-MLMSERVICE-20221226-4005894-1

PATIENT
  Age: 75 Year
  Sex: Female

DRUGS (2)
  1. EPIRUBICIN HYDROCHLORIDE [Suspect]
     Active Substance: EPIRUBICIN HYDROCHLORIDE
     Indication: Breast cancer female
     Dosage: UNK
  2. CYCLOPHOSPHAMIDE [Suspect]
     Active Substance: CYCLOPHOSPHAMIDE
     Indication: Breast cancer female
     Dosage: UNK

REACTIONS (10)
  - Drug monitoring procedure incorrectly performed [Unknown]
  - Injection site necrosis [Recovered/Resolved with Sequelae]
  - Joint range of motion decreased [Unknown]
  - Hypoaesthesia [Unknown]
  - Erythema [Unknown]
  - Infusion site ulcer [Recovered/Resolved with Sequelae]
  - Infusion site extravasation [Recovered/Resolved with Sequelae]
  - Infusion site joint movement impairment [Unknown]
  - Infusion site scar [Unknown]
  - Infusion site pain [Unknown]
